FAERS Safety Report 4288608-8 (Version None)
Quarter: 2004Q1

REPORT INFORMATION
  Report Type: 
  Country: None (occurrence: None)
  Receive Date: 20040209
  Receipt Date: 20031219
  Transmission Date: 20041129
  Serious: Yes (Hospitalization)
  Sender: FDA-Public Use
  Company Number: FR-GLAXOSMITHKLINE-B0318215A

PATIENT
  Age: 76 Year
  Sex: Female
  Weight: 81 kg

DRUGS (6)
  1. AUGMENTIN [Suspect]
     Dosage: 1G PER DAY
     Route: 058
     Dates: start: 20030324, end: 20030327
  2. ROCEPHIN [Suspect]
     Dosage: 1G PER DAY
     Route: 058
     Dates: start: 20030326, end: 20030402
  3. MOPRAL [Suspect]
     Dosage: 40MG PER DAY
     Route: 058
     Dates: start: 20030320, end: 20030328
  4. LOVENOX [Suspect]
     Indication: PHLEBITIS
     Dosage: .4ML PER DAY
     Route: 058
     Dates: start: 20030320, end: 20030324
  5. ACETAMINOPHEN W/ CODEINE [Suspect]
     Dosage: 60MG PER DAY
     Route: 048
     Dates: start: 20030320, end: 20030402
  6. LASILIX [Concomitant]
     Route: 065
     Dates: start: 20030320, end: 20030320

REACTIONS (6)
  - ESCHERICHIA INFECTION [None]
  - HYPOTHERMIA [None]
  - INFLAMMATION [None]
  - POOR VENOUS ACCESS [None]
  - THROMBOCYTOPENIA [None]
  - URINARY TRACT INFECTION [None]
